FAERS Safety Report 25628269 (Version 1)
Quarter: 2025Q3

REPORT INFORMATION
  Report Type: Spontaneous
  Country: US (occurrence: US)
  Receive Date: 20250731
  Receipt Date: 20250731
  Transmission Date: 20251021
  Serious: Yes (Life-Threatening, Hospitalization, Other)
  Sender: AMGEN
  Company Number: US-AMGEN-USASP2025149963

PATIENT

DRUGS (1)
  1. CARFILZOMIB [Suspect]
     Active Substance: CARFILZOMIB
     Indication: Plasma cell myeloma
     Route: 065

REACTIONS (13)
  - Intensive care [Unknown]
  - Immune effector cell-associated neurotoxicity syndrome [Unknown]
  - Neurotoxicity [Unknown]
  - Facial paralysis [Unknown]
  - Parkinsonism [Unknown]
  - Bacteraemia [Unknown]
  - Pneumonia [Unknown]
  - Colitis [Unknown]
  - Cytokine release syndrome [Unknown]
  - Infection [Unknown]
  - Toxicity to various agents [Unknown]
  - Bacterial infection [Unknown]
  - Urinary tract infection [Unknown]
